FAERS Safety Report 18069879 (Version 1)
Quarter: 2020Q3

REPORT INFORMATION
  Report Type: Spontaneous
  Country: CN (occurrence: CN)
  Receive Date: 20200727
  Receipt Date: 20200727
  Transmission Date: 20201103
  Serious: Yes (Other)
  Sender: FDA-Public Use
  Company Number: CN-ROCHE-2647686

PATIENT
  Age: 60 Year
  Sex: Female

DRUGS (6)
  1. XELODA [Suspect]
     Active Substance: CAPECITABINE
     Indication: INVASIVE DUCTAL BREAST CARCINOMA
     Route: 048
     Dates: start: 2013
  2. DOCETAXEL. [Concomitant]
     Active Substance: DOCETAXEL
     Dates: start: 2013
  3. VINORELBINE [Concomitant]
     Active Substance: VINORELBINE TARTRATE
     Dates: start: 20180515
  4. EXEMESTANE. [Concomitant]
     Active Substance: EXEMESTANE
     Route: 048
  5. FULVESTRANT. [Concomitant]
     Active Substance: FULVESTRANT
  6. CISPLATIN. [Concomitant]
     Active Substance: CISPLATIN
     Dates: start: 20180514

REACTIONS (6)
  - Endometrial thickening [Unknown]
  - Pneumonia [Unknown]
  - Pleural effusion [Unknown]
  - Chest discomfort [Unknown]
  - Pericardial effusion [Unknown]
  - Tachypnoea [Unknown]
